FAERS Safety Report 24010900 (Version 7)
Quarter: 2025Q1

REPORT INFORMATION
  Report Type: Spontaneous
  Country: US (occurrence: US)
  Receive Date: 20240625
  Receipt Date: 20250131
  Transmission Date: 20250408
  Serious: Yes (Other)
  Sender: BRISTOL-MYERS SQUIBB COMPANY
  Company Number: US-BRISTOL-MYERS SQUIBB COMPANY-2024-100615

PATIENT
  Age: 87 Year
  Sex: Male
  Weight: 88.45 kg

DRUGS (22)
  1. REVLIMID [Suspect]
     Active Substance: LENALIDOMIDE
     Indication: Plasma cell myeloma
     Dosage: FREQ: ONCE DAILY; 2 WEEKS ON AND 1 WEEK OFF
     Route: 048
     Dates: start: 202402
  2. REVLIMID [Suspect]
     Active Substance: LENALIDOMIDE
     Route: 048
     Dates: start: 20240404
  3. REVLIMID [Suspect]
     Active Substance: LENALIDOMIDE
     Route: 048
     Dates: start: 20240405
  4. REVLIMID [Suspect]
     Active Substance: LENALIDOMIDE
     Route: 048
     Dates: start: 20240405, end: 20240724
  5. REVLIMID [Suspect]
     Active Substance: LENALIDOMIDE
     Route: 048
     Dates: start: 20240620
  6. REVLIMID [Suspect]
     Active Substance: LENALIDOMIDE
     Dosage: TAKE 1 CAPSULE BY MOUTH DAILY. TAKE DAILY ON DAYS 1-7, OFF FOR 7 DAYS AND REPEAT CYCLE. (1 WEEK ON A
     Route: 048
     Dates: start: 20250108
  7. REVLIMID [Suspect]
     Active Substance: LENALIDOMIDE
     Dosage: TAKE 1 CAPSULE BY MOUTH DAILY. TAKE DAILY ON DAYS 1-7, OFF FOR 7 DAYS AND REPEAT CYCLE. (1 WEEK ON A
     Route: 048
  8. METOPROLOL SUCCINATE [Concomitant]
     Active Substance: METOPROLOL SUCCINATE
     Indication: Product used for unknown indication
  9. ACYCLOVIR [Concomitant]
     Active Substance: ACYCLOVIR
     Indication: Product used for unknown indication
  10. CENTRUM SILVER [ASCORBIC ACID;BIOTIN;CALCIUM;CALCIUM PANTOTHENATE;CHLO [Concomitant]
     Indication: Product used for unknown indication
  11. CENTRUM SILVER [ASCORBIC ACID;BIOTIN;CALCIUM;CALCIUM PANTOTHENATE;CHLO [Concomitant]
  12. BISACODYL [Concomitant]
     Active Substance: BISACODYL
     Indication: Product used for unknown indication
  13. DOCUSATE SOD [Concomitant]
     Indication: Product used for unknown indication
  14. MELATONIN [Concomitant]
     Active Substance: MELATONIN
     Indication: Product used for unknown indication
  15. DEXAMETHASONE [Concomitant]
     Active Substance: DEXAMETHASONE
     Indication: Product used for unknown indication
  16. ELIQUIS [Concomitant]
     Active Substance: APIXABAN
     Indication: Product used for unknown indication
  17. MEGESTROL [Concomitant]
     Active Substance: MEGESTROL
     Indication: Product used for unknown indication
  18. METOCLOPRAMIDE [Concomitant]
     Active Substance: METOCLOPRAMIDE
     Indication: Product used for unknown indication
  19. MIRALAX [Concomitant]
     Active Substance: POLYETHYLENE GLYCOL 3350
     Indication: Product used for unknown indication
  20. SENNA LEAF [Concomitant]
     Active Substance: SENNA LEAF
     Indication: Product used for unknown indication
  21. NYSTATIN [Concomitant]
     Active Substance: NYSTATIN
     Indication: Product used for unknown indication
  22. VELCADE [Concomitant]
     Active Substance: BORTEZOMIB
     Indication: Product used for unknown indication

REACTIONS (9)
  - Renal impairment [Unknown]
  - Urinary retention [Unknown]
  - Full blood count decreased [Unknown]
  - Blood urea increased [Unknown]
  - Blood creatine increased [Unknown]
  - Haemoglobin decreased [Unknown]
  - Urinary tract infection [Unknown]
  - Infection [Unknown]
  - Off label use [Unknown]

NARRATIVE: CASE EVENT DATE: 20240620
